FAERS Safety Report 11423379 (Version 1)
Quarter: 2015Q3

REPORT INFORMATION
  Report Type: Spontaneous
  Country: FR (occurrence: FR)
  Receive Date: 20150827
  Receipt Date: 20150827
  Transmission Date: 20151125
  Serious: Yes (Hospitalization)
  Sender: FDA-Public Use
  Company Number: FR-PFIZER INC-2015279744

PATIENT
  Age: 45 Year
  Sex: Female

DRUGS (13)
  1. MERONEM [Concomitant]
     Active Substance: MEROPENEM
     Dosage: 2 G, 3X/DAY (2G/8H)
     Route: 041
     Dates: start: 20150720
  2. LACTULOSE. [Concomitant]
     Active Substance: LACTULOSE
  3. VITAMIN B1 AND B6 [Concomitant]
     Active Substance: PYRIDOXINE HYDROCHLORIDE\THIAMINE HYDROCHLORIDE
  4. ACUPAN [Concomitant]
     Active Substance: NEFOPAM HYDROCHLORIDE
  5. LYRICA [Suspect]
     Active Substance: PREGABALIN
     Dosage: 75 MG, DAILY
     Route: 048
     Dates: start: 20150722
  6. FRAGMINE [Concomitant]
     Active Substance: DALTEPARIN SODIUM
  7. DIFFU-K [Concomitant]
     Active Substance: POTASSIUM CHLORIDE
  8. CIPROFLOXACIN. [Concomitant]
     Active Substance: CIPROFLOXACIN
     Dosage: 500 MG, 2X/DAY
     Route: 048
     Dates: start: 20150718
  9. NOVORAPID [Concomitant]
     Active Substance: INSULIN ASPART
  10. LYRICA [Suspect]
     Active Substance: PREGABALIN
     Dosage: 100 MG, 1X/DAY
     Route: 048
     Dates: start: 20150725, end: 20150727
  11. AMIKACIN [Concomitant]
     Active Substance: AMIKACIN
     Dosage: 900 MG, DAILY
     Dates: start: 20150723
  12. KEPPRA [Concomitant]
     Active Substance: LEVETIRACETAM
  13. SPECIAFOLDINE [Concomitant]
     Active Substance: FOLIC ACID

REACTIONS (1)
  - Neutropenia [Recovering/Resolving]

NARRATIVE: CASE EVENT DATE: 20150723
